FAERS Safety Report 16057490 (Version 1)
Quarter: 2019Q1

REPORT INFORMATION
  Report Type: Spontaneous
  Country: US (occurrence: US)
  Receive Date: 20190311
  Receipt Date: 20190311
  Transmission Date: 20190418
  Serious: Yes (Hospitalization, Other)
  Sender: FDA-Public Use
  Company Number: US-JNJFOC-20190308682

PATIENT
  Age: 84 Year
  Sex: Female

DRUGS (1)
  1. IMBRUVICA [Suspect]
     Active Substance: IBRUTINIB
     Indication: CHRONIC LYMPHOCYTIC LEUKAEMIA
     Route: 065
     Dates: start: 201812, end: 201902

REACTIONS (5)
  - Pancytopenia [Unknown]
  - Metastases to bone marrow [Not Recovered/Not Resolved]
  - Epistaxis [Unknown]
  - Disease progression [Not Recovered/Not Resolved]
  - Anaemia [Unknown]
